FAERS Safety Report 19866480 (Version 3)
Quarter: 2021Q4

REPORT INFORMATION
  Report Type: Report from Study
  Country: US (occurrence: US)
  Receive Date: 20210922
  Receipt Date: 20211115
  Transmission Date: 20220303
  Serious: Yes (Other)
  Sender: FDA-Public Use
  Company Number: NVSC2021US207132

PATIENT
  Sex: Female

DRUGS (2)
  1. PROMACTA [Suspect]
     Active Substance: ELTROMBOPAG OLAMINE
     Indication: Immune thrombocytopenia
     Dosage: 50 MG, QD
     Route: 048
     Dates: start: 20210819
  2. PROMACTA [Suspect]
     Active Substance: ELTROMBOPAG OLAMINE
     Dosage: 50 MG, QD
     Route: 048
     Dates: start: 20210819

REACTIONS (18)
  - Aortic valve stenosis [Unknown]
  - Cardiac murmur [Unknown]
  - COVID-19 [Unknown]
  - Respiratory disorder [Unknown]
  - Lacrimation increased [Unknown]
  - Glossodynia [Unknown]
  - Dysphonia [Unknown]
  - Oropharyngeal pain [Unknown]
  - Feeling abnormal [Unknown]
  - Ear pain [Unknown]
  - Cough [Unknown]
  - Pruritus [Unknown]
  - Fatigue [Unknown]
  - Back pain [Unknown]
  - Rash [Unknown]
  - Nausea [Unknown]
  - Platelet count increased [Unknown]
  - Headache [Unknown]
